FAERS Safety Report 5233342-0 (Version None)
Quarter: 2007Q1

REPORT INFORMATION
  Report Type: 
  Country: None (occurrence: None)
  Receive Date: 20070206
  Receipt Date: 20070125
  Transmission Date: 20070707
  Serious: Yes (Hospitalization)
  Sender: FDA-Public Use
  Company Number: 430019M06USA

PATIENT
  Age: 55 Year
  Sex: Male

DRUGS (17)
  1. NOVANTRONE [Suspect]
     Indication: ACUTE MYELOID LEUKAEMIA
     Dates: start: 20060208, end: 20060212
  2. ETOPOSIDE [Suspect]
     Dates: start: 20060208, end: 20060212
  3. CYTARABINE [Suspect]
     Dates: start: 20060208, end: 20060212
  4. CARVEDILOL [Concomitant]
  5. DYAZIDE [Concomitant]
  6. CLONIDINE [Concomitant]
  7. LIPITOR [Concomitant]
  8. GABAPENTIN [Concomitant]
  9. AVAPRO [Concomitant]
  10. AMBIEN (ZOLIPEM TARTRATE) [Concomitant]
  11. ALLOPURINOL [Concomitant]
  12. VIAGRA [Concomitant]
  13. FLONASE [Concomitant]
  14. PREVACID [Concomitant]
  15. ANZEMET [Concomitant]
  16. ZYRTEC [Concomitant]
  17. GLIPIZIDE [Concomitant]

REACTIONS (5)
  - CATHETER RELATED INFECTION [None]
  - DIARRHOEA [None]
  - EPIGASTRIC DISCOMFORT [None]
  - FEBRILE NEUTROPENIA [None]
  - STAPHYLOCOCCAL BACTERAEMIA [None]
